FAERS Safety Report 10866438 (Version 1)
Quarter: 2015Q1

REPORT INFORMATION
  Report Type: Spontaneous
  Country: US (occurrence: None)
  Receive Date: 20150219
  Receipt Date: 20150219
  Transmission Date: 20150721
  Serious: Yes (Hospitalization)
  Sender: FDA-Public Use
  Company Number: None

PATIENT
  Age: 78 Year
  Sex: Female

DRUGS (19)
  1. WARFARIN [Suspect]
     Active Substance: WARFARIN
     Indication: ATRIAL FIBRILLATION
     Route: 048
  2. TEMAZEPAM (RESTORIL) [Concomitant]
  3. ISOMETHEPTENE-ACETAMINOPHEN-DICHLORALPHENAZONE (MIDRIN) [Concomitant]
  4. FISH OIL-OMEGA-3 FATTY ACIDS [Concomitant]
  5. LEVOTHYROXINE (SYNTRHOID, LEVOTHROID) [Concomitant]
  6. LISINOPRIL (ZESTRIL) [Concomitant]
  7. POTASSIUM CHLORIDE SA (KLOR-CON M10) [Concomitant]
  8. MULTIPLE VITAMINS-MINERALS (MULTIVITAMIN PO) [Concomitant]
  9. LORATADINE (CLARITIN) [Concomitant]
  10. CHOLECALCIFEROL [Concomitant]
     Active Substance: CHOLECALCIFEROL
  11. ALLOPURINOL (ZYLOPRIM) [Concomitant]
  12. METFORMIN (GLUCOPHAGE) [Concomitant]
  13. CEPHALEXIN (KEFLEX) [Concomitant]
  14. GLIPIZIDE (GLUCOTROL) [Concomitant]
  15. GLUCOSE-CHOLECALCIFEROL [Concomitant]
  16. FUROSEMIDE (LASIX) [Concomitant]
  17. OMEGA 3 POLYUNSATURATED FATTY ACIDS [Concomitant]
  18. ASPIRIN 81 MG [Suspect]
     Active Substance: ASPIRIN
     Indication: ATRIAL FIBRILLATION
     Route: 048
  19. METFORMIN (GLUCOPHAGE-XR) [Concomitant]

REACTIONS (2)
  - Dizziness [None]
  - Epistaxis [None]

NARRATIVE: CASE EVENT DATE: 20140514
